FAERS Safety Report 7814448-6 (Version None)
Quarter: 2011Q4

REPORT INFORMATION
  Report Type: 
  Country: None (occurrence: None)
  Receive Date: 20111014
  Receipt Date: 20110930
  Transmission Date: 20120403
  Serious: Yes (Other)
  Sender: FDA-Public Use
  Company Number: US-ELI_LILLY_AND_COMPANY-US201110001402

PATIENT
  Sex: Female

DRUGS (4)
  1. SYNTHROID [Concomitant]
     Indication: HYPERTENSION
     Dosage: UNK
  2. LISINOPRIL                              /USA/ [Concomitant]
     Indication: HYPERTENSION
     Dosage: UNK
  3. CYMBALTA [Suspect]
     Indication: DEPRESSION
     Dosage: UNK
  4. ALCOHOL [Concomitant]
     Dosage: UNK

REACTIONS (6)
  - FALL [None]
  - BONE EROSION [None]
  - UPPER LIMB FRACTURE [None]
  - POTENTIATING DRUG INTERACTION [None]
  - HEPATIC ENZYME INCREASED [None]
  - BONE CYST [None]
